FAERS Safety Report 13579697 (Version 1)
Quarter: 2017Q2

REPORT INFORMATION
  Report Type: Spontaneous
  Country: US (occurrence: US)
  Receive Date: 20170525
  Receipt Date: 20170525
  Transmission Date: 20170830
  Serious: Yes (Other)
  Sender: FDA-Public Use
  Company Number: US-CLINIGEN GROUP PLC/ CLINIGEN HEALTHCARE LTD-E2B_00005150

PATIENT
  Age: 41 Year
  Sex: Male
  Weight: 67 kg

DRUGS (3)
  1. FOSCAVIR [Suspect]
     Active Substance: FOSCARNET SODIUM
     Indication: CYTOMEGALOVIRUS CHORIORETINITIS
     Dosage: DOSE: 90 MG/KG TOTAL DAILY DOSE: 90 MG/KG
     Route: 042
     Dates: start: 19940103, end: 19940503
  2. NORMAL SALINE [Concomitant]
     Active Substance: SODIUM CHLORIDE
     Indication: DEHYDRATION
     Dosage: DOSE: 1  TOTAL DAILY DOSE: 1
     Route: 042
     Dates: start: 19940429, end: 19940503
  3. AMPHOTERICIN B. [Concomitant]
     Active Substance: AMPHOTERICIN B
     Indication: CANDIDA INFECTION
     Dosage: DOSE: 40 MG TOTAL DAILY DOSE: 40 MG
     Route: 042
     Dates: start: 19940429, end: 19940503

REACTIONS (1)
  - Renal impairment [Recovered/Resolved]

NARRATIVE: CASE EVENT DATE: 19960502
